FAERS Safety Report 25996621 (Version 1)
Quarter: 2025Q4

REPORT INFORMATION
  Report Type: Report from Study
  Country: CO (occurrence: CO)
  Receive Date: 20251104
  Receipt Date: 20251104
  Transmission Date: 20260118
  Serious: Yes (Other)
  Sender: ABBVIE
  Company Number: CO-ABBVIE-6529422

PATIENT
  Age: 61 Year
  Sex: Female
  Weight: 74 kg

DRUGS (1)
  1. RINVOQ [Suspect]
     Active Substance: UPADACITINIB
     Indication: Crohn^s disease
     Route: 048
     Dates: start: 20250619

REACTIONS (3)
  - Gastrointestinal stoma complication [Unknown]
  - Procedural pain [Not Recovered/Not Resolved]
  - Post procedural inflammation [Not Recovered/Not Resolved]

NARRATIVE: CASE EVENT DATE: 20251026
